FAERS Safety Report 10728270 (Version 1)
Quarter: 2015Q1

REPORT INFORMATION
  Report Type: Spontaneous
  Country: US (occurrence: US)
  Receive Date: 20150121
  Receipt Date: 20150121
  Transmission Date: 20150721
  Serious: Yes (Hospitalization)
  Sender: FDA-Public Use
  Company Number: US-BRISTOL-MYERS SQUIBB COMPANY-BMS-2015-001888

PATIENT
  Age: 68 Year
  Sex: Male
  Weight: 89.8 kg

DRUGS (2)
  1. GLIPIRIDE [Concomitant]
     Active Substance: GLIMEPIRIDE
  2. BYDUREON [Suspect]
     Active Substance: EXENATIDE
     Indication: TYPE 2 DIABETES MELLITUS
     Dosage: 2 MG, QWK
     Route: 058
     Dates: start: 20141101

REACTIONS (10)
  - Rhinorrhoea [Unknown]
  - Dyspnoea [Unknown]
  - Sinusitis [Unknown]
  - Hypoglycaemia [Unknown]
  - Dizziness [Unknown]
  - Decreased appetite [Unknown]
  - Cough [Unknown]
  - Hyperhidrosis [Unknown]
  - Bronchitis [Unknown]
  - Abdominal pain upper [Not Recovered/Not Resolved]

NARRATIVE: CASE EVENT DATE: 20141217
